FAERS Safety Report 7025509-6 (Version None)
Quarter: 2010Q4

REPORT INFORMATION
  Report Type: 
  Country: None (occurrence: None)
  Receive Date: 20101002
  Receipt Date: 20100930
  Transmission Date: 20110411
  Serious: Yes (Death)
  Sender: FDA-Public Use
  Company Number: PHHY2010US55214

PATIENT
  Sex: Female

DRUGS (2)
  1. NEORAL [Suspect]
     Indication: LIVER TRANSPLANT
     Dosage: 100 MG, BID
     Route: 048
     Dates: start: 20080227
  2. NEORAL [Suspect]
     Dosage: 100 MG, BID
     Route: 048
     Dates: start: 20070919, end: 20100228

REACTIONS (1)
  - DEATH [None]
